FAERS Safety Report 7439513-7 (Version None)
Quarter: 2011Q2

REPORT INFORMATION
  Report Type: 
  Country: None (occurrence: None)
  Receive Date: 20110427
  Receipt Date: 20110419
  Transmission Date: 20111010
  Serious: Yes (Death, Other)
  Sender: FDA-Public Use
  Company Number: DE-JNJFOC-20110410309

PATIENT
  Age: 43 Year
  Sex: Female

DRUGS (6)
  1. KETOCONAZOLE [Suspect]
     Dosage: IN 4 DIVIDED DOSES
     Route: 065
  2. PAROXETINE HCL [Concomitant]
     Route: 065
  3. REBOXETINE [Concomitant]
     Route: 065
  4. TRIMIPRAMINE MALEATE [Concomitant]
     Route: 065
  5. KETOCONAZOLE [Suspect]
     Indication: MAJOR DEPRESSION
     Dosage: IN 4 DIVIDED DOSES
     Route: 065
  6. DOXEPIN [Concomitant]
     Route: 065

REACTIONS (2)
  - DRUG INEFFECTIVE FOR UNAPPROVED INDICATION [None]
  - COMPLETED SUICIDE [None]
